FAERS Safety Report 6262189-1 (Version None)
Quarter: 2009Q3

REPORT INFORMATION
  Report Type: 
  Country: None (occurrence: None)
  Receive Date: 20090709
  Receipt Date: 20090701
  Transmission Date: 20100115
  Serious: Yes (Disabling, Other)
  Sender: FDA-Public Use
  Company Number: US-MERCK-0608USA01932

PATIENT
  Age: 43 Year
  Sex: Male
  Weight: 79 kg

DRUGS (12)
  1. FOSAMAX [Suspect]
     Indication: OSTEOPOROSIS
     Route: 048
     Dates: start: 20020308, end: 20040101
  2. ZOMETA [Suspect]
     Indication: OSTEOPOROSIS
     Route: 041
     Dates: start: 20040316, end: 20060101
  3. CALCIUM (UNSPECIFIED) [Concomitant]
     Route: 065
     Dates: start: 20020308
  4. OXYCONTIN [Concomitant]
     Route: 065
  5. OXYCONTIN [Concomitant]
     Route: 065
  6. OXYCONTIN [Concomitant]
     Route: 065
  7. HYDROCODONE BITARTRATE [Concomitant]
     Route: 065
  8. ALLEGRA [Concomitant]
     Route: 065
  9. [THERAPY UNSPECIFIED] [Concomitant]
     Indication: MASTOCYTOSIS
     Route: 065
  10. CLONAZEPAM [Concomitant]
     Route: 065
  11. MIRALAX [Concomitant]
     Route: 065
  12. BENADRYL [Concomitant]
     Route: 065

REACTIONS (20)
  - ABDOMINAL PAIN [None]
  - ABNORMAL LOSS OF WEIGHT [None]
  - BACK PAIN [None]
  - BREATH ODOUR [None]
  - COGNITIVE DISORDER [None]
  - DENTAL CARIES [None]
  - DEPRESSION [None]
  - DRUG HYPERSENSITIVITY [None]
  - FALL [None]
  - HERNIA [None]
  - INSOMNIA [None]
  - INTERVERTEBRAL DISC DEGENERATION [None]
  - INTESTINAL FUNCTIONAL DISORDER [None]
  - NEOPLASM MALIGNANT [None]
  - OSTEONECROSIS [None]
  - PAIN [None]
  - RESORPTION BONE INCREASED [None]
  - SEXUAL DYSFUNCTION [None]
  - SINUSITIS [None]
  - URINARY TRACT DISORDER [None]
